FAERS Safety Report 21443092 (Version 2)
Quarter: 2022Q4

REPORT INFORMATION
  Report Type: Report from Study
  Country: US (occurrence: US)
  Receive Date: 20221012
  Receipt Date: 20221018
  Transmission Date: 20230113
  Serious: Yes (Other)
  Sender: FDA-Public Use
  Company Number: US-ABBVIE-4151300

PATIENT
  Age: 68 Year
  Sex: Female
  Weight: 73.481 kg

DRUGS (8)
  1. HUMIRA [Suspect]
     Active Substance: ADALIMUMAB
     Indication: Colitis ulcerative
     Dosage: CITRATE FREE
     Route: 058
     Dates: start: 2019
  2. HUMIRA [Suspect]
     Active Substance: ADALIMUMAB
     Dosage: CITRATE FREE
     Route: 058
  3. HUMIRA [Suspect]
     Active Substance: ADALIMUMAB
     Dosage: NON CITRATE FREE
     Route: 058
  4. PERCOCET [Concomitant]
     Active Substance: ACETAMINOPHEN\OXYCODONE HYDROCHLORIDE
     Indication: Pain
  5. ASPIRIN [Concomitant]
     Active Substance: ASPIRIN
     Indication: Thrombosis
  6. BENADRYL [Concomitant]
     Active Substance: DIPHENHYDRAMINE HYDROCHLORIDE
     Indication: Pruritus
  7. OXYCONTIN [Concomitant]
     Active Substance: OXYCODONE HYDROCHLORIDE
     Indication: Pain
  8. LISINOPRIL [Concomitant]
     Active Substance: LISINOPRIL
     Indication: Hypertension

REACTIONS (4)
  - Ankle fracture [Recovering/Resolving]
  - Ligament rupture [Recovering/Resolving]
  - Injection site pain [Not Recovered/Not Resolved]
  - Muscle rupture [Recovering/Resolving]

NARRATIVE: CASE EVENT DATE: 20220627
